FAERS Safety Report 6183752-2 (Version None)
Quarter: 2009Q2

REPORT INFORMATION
  Report Type: 
  Country: None (occurrence: None)
  Receive Date: 20090506
  Receipt Date: 20090422
  Transmission Date: 20091009
  Serious: Yes (Other)
  Sender: FDA-Public Use
  Company Number: 1000005544

PATIENT
  Age: 91 Year
  Sex: Male
  Weight: 58 kg

DRUGS (8)
  1. MEMANTINE HCL [Suspect]
     Indication: DEMENTIA ALZHEIMER'S TYPE
     Dosage: 5 MG (5 MG, 1 IN 1 D), ORAL
     Route: 048
     Dates: start: 20081121, end: 20081216
  2. ARICEPT [Suspect]
     Dates: end: 20081124
  3. LEVOTHYROX [Concomitant]
  4. LAMICTAL [Concomitant]
  5. PROSCAR [Concomitant]
  6. LAXATIVE [Concomitant]
  7. RISPERDAL [Concomitant]
  8. IMOVANE (TABLETS) [Concomitant]

REACTIONS (6)
  - COMA [None]
  - EPILEPSY [None]
  - MALAISE [None]
  - PETIT MAL EPILEPSY [None]
  - POSTICTAL STATE [None]
  - SINUS BRADYCARDIA [None]
